FAERS Safety Report 5405893-7 (Version None)
Quarter: 2007Q3

REPORT INFORMATION
  Report Type: 
  Country: None (occurrence: None)
  Receive Date: 20070806
  Receipt Date: 20070802
  Transmission Date: 20080115
  Serious: Yes (Hospitalization)
  Sender: FDA-Public Use
  Company Number: AU-BRISTOL-MYERS SQUIBB COMPANY-13865472

PATIENT
  Age: 81 Year
  Sex: Female

DRUGS (5)
  1. PRAVACHOL [Suspect]
  2. IRBESARTAN + HCTZ TABS [Suspect]
     Indication: ESSENTIAL HYPERTENSION
     Route: 048
     Dates: end: 20050924
  3. ASPIRIN [Concomitant]
     Indication: COAGULOPATHY
  4. PINDOLOL [Concomitant]
     Indication: ESSENTIAL HYPERTENSION
  5. ACETAMINOPHEN [Concomitant]
     Indication: PAIN

REACTIONS (3)
  - ARTHRALGIA [None]
  - DIZZINESS [None]
  - HYPONATRAEMIA [None]
